FAERS Safety Report 24593167 (Version 1)
Quarter: 2024Q4

REPORT INFORMATION
  Report Type: Spontaneous
  Country: US (occurrence: None)
  Receive Date: 20241107
  Receipt Date: 20241107
  Transmission Date: 20250114
  Serious: Yes (Life-Threatening)
  Sender: Public
  Company Number: None

PATIENT
  Age: 63 Year
  Sex: Female

DRUGS (1)
  1. PACLITAXEL [Suspect]
     Active Substance: PACLITAXEL
     Indication: Lung adenocarcinoma stage II
     Dates: start: 20240826, end: 20240826

REACTIONS (4)
  - Angioedema [None]
  - Cough [None]
  - Tachypnoea [None]
  - Respiratory depression [None]

NARRATIVE: CASE EVENT DATE: 20240826
